FAERS Safety Report 7235873-0 (Version None)
Quarter: 2011Q1

REPORT INFORMATION
  Report Type: 
  Country: None (occurrence: None)
  Receive Date: 20110120
  Receipt Date: 20110105
  Transmission Date: 20110831
  Serious: Yes (Other)
  Sender: FDA-Public Use
  Company Number: US-ROCHE-754163

PATIENT
  Age: 43 Year
  Sex: Female

DRUGS (2)
  1. AVASTIN [Suspect]
     Indication: BREAST CANCER
     Dosage: FORM:INFUSION
     Route: 065
     Dates: start: 20090101
  2. TAXOL [Concomitant]
     Dates: start: 20090101

REACTIONS (5)
  - EPISTAXIS [None]
  - BLOOD PRESSURE INCREASED [None]
  - MENTAL DISORDER DUE TO A GENERAL MEDICAL CONDITION [None]
  - MIGRAINE [None]
  - CONVULSION [None]
